FAERS Safety Report 6015557-7 (Version None)
Quarter: 2008Q4

REPORT INFORMATION
  Report Type: 
  Country: None (occurrence: None)
  Receive Date: 20081219
  Receipt Date: 20081219
  Transmission Date: 20090506
  Serious: Yes (Death)
  Sender: FDA-Public Use
  Company Number: None

PATIENT
  Age: 30 Year
  Sex: Female
  Weight: 119.296 kg

DRUGS (1)
  1. ZOLOFT [Suspect]

REACTIONS (1)
  - CARDIAC ARREST [None]
